FAERS Safety Report 22245509 (Version 2)
Quarter: 2025Q2

REPORT INFORMATION
  Report Type: Report from Study
  Country: IT (occurrence: IT)
  Receive Date: 20230424
  Receipt Date: 20250524
  Transmission Date: 20250717
  Serious: Yes (Death, Hospitalization, Other)
  Sender: AUROBINDO
  Company Number: IT-DSJP-DSE-2023-113483

PATIENT

DRUGS (2)
  1. PRAVASTATIN [Suspect]
     Active Substance: PRAVASTATIN
     Indication: Pre-eclampsia
     Dosage: 40 MILLIGRAM, ONCE A DAY(40 MG, QD)
     Route: 064
  2. PRAVASTATIN [Suspect]
     Active Substance: PRAVASTATIN
     Indication: Foetal growth restriction

REACTIONS (6)
  - Death neonatal [Fatal]
  - Apgar score low [Unknown]
  - Low birth weight baby [Unknown]
  - Neurodevelopmental disorder [Unknown]
  - Premature baby [Unknown]
  - Foetal exposure during pregnancy [Recovered/Resolved]
